FAERS Safety Report 7232573-8 (Version None)
Quarter: 2011Q1

REPORT INFORMATION
  Report Type: 
  Country: None (occurrence: None)
  Receive Date: 20110112
  Receipt Date: 20110112
  Transmission Date: 20110831
  Serious: Yes (Hospitalization)
  Sender: FDA-Public Use
  Company Number: None

PATIENT
  Age: 14 Year
  Sex: Female
  Weight: 70.3075 kg

DRUGS (4)
  1. LEXAPRO [Suspect]
     Indication: INSOMNIA
     Dosage: 10 MG ONCE DAILY PO
     Route: 048
     Dates: start: 20081210, end: 20090225
  2. LEXAPRO [Suspect]
     Indication: DEPRESSION
     Dosage: 10 MG ONCE DAILY PO
     Route: 048
     Dates: start: 20081210, end: 20090225
  3. LEXAPRO [Suspect]
     Indication: PANIC DISORDER
     Dosage: 10 MG ONCE DAILY PO
     Route: 048
     Dates: start: 20081210, end: 20090225
  4. LEXAPRO [Suspect]
     Indication: SOCIAL PHOBIA
     Dosage: 10 MG ONCE DAILY PO
     Route: 048
     Dates: start: 20081210, end: 20090225

REACTIONS (6)
  - SUICIDAL IDEATION [None]
  - WEIGHT INCREASED [None]
  - AGITATION [None]
  - IRRITABILITY [None]
  - INSOMNIA [None]
  - ANXIETY [None]
